FAERS Safety Report 25309981 (Version 1)
Quarter: 2025Q2

REPORT INFORMATION
  Report Type: Report from Study
  Country: AU (occurrence: None)
  Receive Date: 20250514
  Receipt Date: 20250514
  Transmission Date: 20250716
  Serious: Yes (Other)
  Sender: CMP PHARMA
  Company Number: AU-CMPPHARMA-000505

PATIENT

DRUGS (2)
  1. NORLIQVA [Suspect]
     Active Substance: AMLODIPINE
     Indication: Product used for unknown indication
  2. TELMISARTAN [Suspect]
     Active Substance: TELMISARTAN
     Indication: Product used for unknown indication

REACTIONS (3)
  - Pulmonary oedema [Recovered/Resolved]
  - Intentional overdose [Unknown]
  - Hypotension [Recovering/Resolving]
